FAERS Safety Report 6643954-5 (Version None)
Quarter: 2010Q1

REPORT INFORMATION
  Report Type: 
  Country: None (occurrence: None)
  Receive Date: 20100322
  Receipt Date: 20100315
  Transmission Date: 20100710
  Serious: Yes (Other)
  Sender: FDA-Public Use
  Company Number: SI-BRISTOL-MYERS SQUIBB COMPANY-15019789

PATIENT
  Age: 78 Year
  Sex: Female
  Weight: 90 kg

DRUGS (4)
  1. MONOPRIL PLUS TABS [Suspect]
     Indication: ESSENTIAL HYPERTENSION
     Dosage: TAKEN 2 TABS
     Route: 048
     Dates: start: 20100217
  2. MONOPRIL [Concomitant]
     Dosage: FORM TABLETS. MONOPRIL 20MG. 2 TABLETS.
  3. CONCOR [Concomitant]
     Dosage: 1 TAB
  4. LACIPIL [Concomitant]
     Dosage: 1/2 TO 1 TABLET AS NEEDED.

REACTIONS (1)
  - HAEMATURIA [None]
